FAERS Safety Report 5223418-6 (Version None)
Quarter: 2007Q1

REPORT INFORMATION
  Report Type: 
  Country: None (occurrence: None)
  Receive Date: 20070124
  Receipt Date: 20070118
  Transmission Date: 20070707
  Serious: Yes (Other)
  Sender: FDA-Public Use
  Company Number: 2006SP008904

PATIENT
  Age: 66 Year
  Sex: 0
  Weight: 47 kg

DRUGS (17)
  1. TEMOZOLOMIDE  (S-P) (TEMOZOLOMIDE ) [Suspect]
     Indication: GLIOBLASTOMA MULTIFORME
     Dosage: 75 MG/M2;QD;PO; SEE IMAGE
     Route: 048
     Dates: start: 20060529, end: 20060707
  2. TEMOZOLOMIDE  (S-P) (TEMOZOLOMIDE ) [Suspect]
     Indication: GLIOBLASTOMA MULTIFORME
     Dosage: 75 MG/M2;QD;PO; SEE IMAGE
     Route: 048
     Dates: start: 20060803, end: 20060807
  3. TEMOZOLOMIDE  (S-P) (TEMOZOLOMIDE ) [Suspect]
     Indication: GLIOBLASTOMA MULTIFORME
     Dosage: 75 MG/M2;QD;PO; SEE IMAGE
     Route: 048
     Dates: start: 20060831, end: 20060904
  4. TEMOZOLOMIDE  (S-P) (TEMOZOLOMIDE ) [Suspect]
     Indication: GLIOBLASTOMA MULTIFORME
     Dosage: 75 MG/M2;QD;PO; SEE IMAGE
     Route: 048
     Dates: start: 20060928, end: 20061002
  5. TEMOZOLOMIDE  (S-P) (TEMOZOLOMIDE ) [Suspect]
     Indication: GLIOBLASTOMA MULTIFORME
     Dosage: 75 MG/M2;QD;PO; SEE IMAGE
     Route: 048
     Dates: start: 20061026, end: 20061030
  6. TEMOZOLOMIDE  (S-P) (TEMOZOLOMIDE ) [Suspect]
     Indication: GLIOBLASTOMA MULTIFORME
     Dosage: 75 MG/M2;QD;PO; SEE IMAGE
     Route: 048
     Dates: start: 20061123, end: 20061127
  7. TEMOZOLOMIDE  (S-P) (TEMOZOLOMIDE ) [Suspect]
     Indication: GLIOBLASTOMA MULTIFORME
     Dosage: 75 MG/M2;QD;PO; SEE IMAGE
     Route: 048
     Dates: start: 20061221, end: 20061225
  8. NASEA OD [Concomitant]
  9. GLIMICRON [Concomitant]
  10. EXCEGRAN [Concomitant]
  11. MYSLEE [Concomitant]
  12. PREDONINE [Concomitant]
  13. GASTER [Concomitant]
  14. BAKTAR [Concomitant]
  15. NEW LECICARBON [Concomitant]
  16. LAXOBERON [Concomitant]
  17. SELTOUCH [Concomitant]

REACTIONS (3)
  - ABDOMINAL DISTENSION [None]
  - GASTRIC CANCER [None]
  - MALIGNANT NEOPLASM PROGRESSION [None]
